FAERS Safety Report 14074210 (Version 1)
Quarter: 2017Q4

REPORT INFORMATION
  Report Type: Spontaneous
  Country: US (occurrence: US)
  Receive Date: 20171010
  Receipt Date: 20171010
  Transmission Date: 20180321
  Serious: Yes (Other)
  Sender: FDA-Public Use
  Company Number: US-SA-2017SA189642

PATIENT

DRUGS (3)
  1. LANTUS [Concomitant]
     Active Substance: INSULIN GLARGINE
  2. TOUJEO [Suspect]
     Active Substance: INSULIN GLARGINE
     Route: 051
  3. SOLOSTAR [Concomitant]
     Active Substance: DEVICE

REACTIONS (8)
  - Depressed level of consciousness [Unknown]
  - Bone pain [Unknown]
  - Headache [Unknown]
  - Myalgia [Unknown]
  - Blood glucose increased [Unknown]
  - Hyperhidrosis [Unknown]
  - Blood glucose decreased [Unknown]
  - Muscle spasms [Unknown]

NARRATIVE: CASE EVENT DATE: 20170926
